FAERS Safety Report 9405041 (Version 1)
Quarter: 2013Q3

REPORT INFORMATION
  Report Type: Spontaneous
  Country: US (occurrence: US)
  Receive Date: 20130717
  Receipt Date: 20130717
  Transmission Date: 20140515
  Serious: No
  Sender: FDA-Public Use
  Company Number: US-BRISTOL-MYERS SQUIBB COMPANY-18849414

PATIENT
  Age: 6 Decade
  Sex: Female

DRUGS (1)
  1. YERVOY [Suspect]
     Dosage: LAST DOSE: 18APR2013

REACTIONS (1)
  - Diarrhoea [Unknown]
